FAERS Safety Report 9713367 (Version 1)
Quarter: 2013Q4

REPORT INFORMATION
  Report Type: Spontaneous
  Country: US (occurrence: None)
  Receive Date: 20131125
  Receipt Date: 20131125
  Transmission Date: 20140711
  Serious: No
  Sender: FDA-Public Use
  Company Number: None

PATIENT
  Age: 19 Year
  Sex: Female
  Weight: 58 kg

DRUGS (14)
  1. SUCCINYLCHOLINE [Suspect]
     Indication: SURGERY
     Route: 042
     Dates: start: 20131028, end: 20131028
  2. ULTANE [Concomitant]
  3. PROPOFOL [Concomitant]
  4. VERSED [Concomitant]
  5. LIDOCAINE [Concomitant]
  6. GLYCOPYRROLATE [Concomitant]
  7. ONDANSETRON [Concomitant]
  8. METOCLOPRAMIDE [Concomitant]
  9. DEMEROL [Concomitant]
  10. PHYSOSTIGMINE [Concomitant]
  11. LACTATED RINGERS SOLUTION [Concomitant]
  12. CEFAZOLIN [Concomitant]
  13. SALINE [Concomitant]
  14. ESMOLOL [Concomitant]

REACTIONS (1)
  - Neck pain [None]
